FAERS Safety Report 4569644-0 (Version None)
Quarter: 2005Q1

REPORT INFORMATION
  Report Type: 
  Country: None (occurrence: None)
  Receive Date: 20050201
  Receipt Date: 20050113
  Transmission Date: 20050727
  Serious: Yes (Death)
  Sender: FDA-Public Use
  Company Number: 2005S1000062

PATIENT
  Age: 4 Month
  Sex: Female
  Weight: 5.1 kg

DRUGS (6)
  1. NITRIC OXIDE FOR INHALATION (NITRIC OXIDE FOR INHALATION) [Suspect]
     Indication: VASODILATION PROCEDURE
     Dosage: 80 PPM; COUNT; INH
     Route: 055
     Dates: start: 20050112, end: 20050112
  2. ATROPINE [Concomitant]
  3. SEVORANE [Concomitant]
  4. FENTANEST [Concomitant]
  5. PENTHOTHAL [Concomitant]
  6. ATRACURIO [Concomitant]

REACTIONS (9)
  - AORTIC VALVE INCOMPETENCE [None]
  - BRADYCARDIA [None]
  - CARDIAC OUTPUT DECREASED [None]
  - CARDIAC PROCEDURE COMPLICATION [None]
  - CARDIOMEGALY [None]
  - IATROGENIC INJURY [None]
  - OXYGEN SATURATION DECREASED [None]
  - POST PROCEDURAL COMPLICATION [None]
  - VASCULAR RESISTANCE PULMONARY DECREASED [None]
